FAERS Safety Report 7010221-X (Version None)
Quarter: 2010Q3

REPORT INFORMATION
  Report Type: 
  Country: None (occurrence: None)
  Receive Date: 20100923
  Receipt Date: 20100914
  Transmission Date: 20110219
  Serious: Yes (Hospitalization)
  Sender: FDA-Public Use
  Company Number: GXKR2010US09936

PATIENT
  Sex: Male

DRUGS (1)
  1. AMPICILLIN (NGX) [Suspect]
     Dosage: MATERNAL DOSE: 2 G, Q6H
     Route: 064

REACTIONS (5)
  - DRUG EXPOSURE DURING PREGNANCY [None]
  - FOETAL HEART RATE DECELERATION [None]
  - FOETAL HEART RATE INCREASED [None]
  - PREMATURE BABY [None]
  - RESPIRATORY DISORDER [None]
